FAERS Safety Report 4970694-0 (Version None)
Quarter: 2006Q1

REPORT INFORMATION
  Report Type: 
  Country: None (occurrence: None)
  Receive Date: 20060207
  Receipt Date: 20050927
  Transmission Date: 20060701
  Serious: Yes (Hospitalization, Other)
  Sender: FDA-Public Use
  Company Number: USA0506101434

PATIENT
  Age: 60 Year
  Sex: Female

DRUGS (3)
  1. EVISTA [Suspect]
     Dosage: 60 MG DAY
     Dates: start: 20020601, end: 20050614
  2. LIPITOR [Concomitant]
  3. CALCIUM GLUCONATE [Concomitant]

REACTIONS (1)
  - PULMONARY EMBOLISM [None]
